FAERS Safety Report 7947069-5 (Version None)
Quarter: 2011Q4

REPORT INFORMATION
  Report Type: 
  Country: None (occurrence: None)
  Receive Date: 20111129
  Receipt Date: 20111012
  Transmission Date: 20120403
  Serious: No
  Sender: FDA-Public Use
  Company Number: US-ASTRAZENECA-2011SE61451

PATIENT
  Age: 57 Year
  Sex: Male
  Weight: 102.1 kg

DRUGS (3)
  1. ASPIRIN [Concomitant]
  2. LIPITOR [Concomitant]
  3. VIMOVO [Suspect]
     Indication: TENDONITIS
     Route: 048

REACTIONS (3)
  - ARTHRALGIA [None]
  - ABDOMINAL DISCOMFORT [None]
  - DRUG INEFFECTIVE [None]
